FAERS Safety Report 19905013 (Version 8)
Quarter: 2022Q1

REPORT INFORMATION
  Report Type: Report from Study
  Country: GB (occurrence: GB)
  Receive Date: 20211001
  Receipt Date: 20220318
  Transmission Date: 20220423
  Serious: Yes (Hospitalization, Other)
  Sender: FDA-Public Use
  Company Number: GB-ROCHE-2911088

PATIENT
  Age: 50 Year
  Sex: Female

DRUGS (52)
  1. BEVACIZUMAB [Suspect]
     Active Substance: BEVACIZUMAB
     Indication: Non-small cell lung cancer metastatic
     Dosage: 1200 MG
     Route: 065
     Dates: start: 20210811
  2. CARBOPLATIN [Suspect]
     Active Substance: CARBOPLATIN
     Indication: Non-small cell lung cancer metastatic
     Dosage: 630 MG
     Dates: start: 20210811
  3. CARBOPLATIN [Suspect]
     Active Substance: CARBOPLATIN
     Dosage: 240 MG
     Route: 065
     Dates: start: 20210901
  4. PACLITAXEL [Suspect]
     Active Substance: PACLITAXEL
     Indication: Non-small cell lung cancer metastatic
     Dosage: 300 MG
     Route: 065
     Dates: start: 20210811
  5. ATEZOLIZUMAB [Suspect]
     Active Substance: ATEZOLIZUMAB
     Indication: Non-small cell lung cancer metastatic
     Dosage: ON 11/AUG/2021, SHE RECEIVED MOST RECENT DOSE OF ATEZOLIZUMAB (1200 MG) PRIOR TO ONSET OF SERIOUS AD
     Route: 041
     Dates: start: 20210811
  6. CHLORPHENIRAMINE MALEATE [Concomitant]
     Active Substance: CHLORPHENIRAMINE MALEATE
     Dosage: 10 MG
     Route: 065
     Dates: start: 20210722, end: 20210722
  7. CHLORPHENIRAMINE MALEATE [Concomitant]
     Active Substance: CHLORPHENIRAMINE MALEATE
     Dosage: 10 MG
     Route: 065
     Dates: start: 20210811, end: 20210811
  8. CHLORPHENIRAMINE MALEATE [Concomitant]
     Active Substance: CHLORPHENIRAMINE MALEATE
     Dosage: 10 MG
     Route: 065
     Dates: start: 20210901, end: 20210901
  9. CHLORPHENIRAMINE MALEATE [Concomitant]
     Active Substance: CHLORPHENIRAMINE MALEATE
     Dosage: 10 MG
     Route: 065
     Dates: start: 20210922, end: 20210922
  10. DEXAMETHASONE [Concomitant]
     Active Substance: DEXAMETHASONE
     Dosage: 20 MG
     Route: 065
     Dates: start: 20210722, end: 20210722
  11. DEXAMETHASONE [Concomitant]
     Active Substance: DEXAMETHASONE
     Dosage: 20 MG
     Route: 065
     Dates: start: 20210811, end: 20210811
  12. DEXAMETHASONE [Concomitant]
     Active Substance: DEXAMETHASONE
     Dosage: 20 MG
     Route: 065
     Dates: start: 20210901, end: 20210901
  13. DEXAMETHASONE [Concomitant]
     Active Substance: DEXAMETHASONE
     Dosage: 20 MG
     Route: 065
     Dates: start: 20210922, end: 20210922
  14. DEXAMETHASONE [Concomitant]
     Active Substance: DEXAMETHASONE
     Dosage: UNK, 3X/DAY
     Route: 065
  15. ONDANSETRON [Concomitant]
     Active Substance: ONDANSETRON
     Dosage: 8 MG
     Route: 065
     Dates: start: 20210722, end: 20210722
  16. ONDANSETRON [Concomitant]
     Active Substance: ONDANSETRON
     Dosage: 8 MG
     Route: 065
     Dates: start: 20210811, end: 20210811
  17. ONDANSETRON [Concomitant]
     Active Substance: ONDANSETRON
     Dosage: 8 MG
     Route: 065
     Dates: start: 20210901, end: 20210901
  18. ONDANSETRON [Concomitant]
     Active Substance: ONDANSETRON
     Dosage: 8 MG
     Route: 065
     Dates: start: 20210922, end: 20210922
  19. RANITIDINE [Concomitant]
     Active Substance: RANITIDINE
     Dosage: 20 MG
     Route: 065
     Dates: start: 20210722, end: 20210722
  20. RANITIDINE [Concomitant]
     Active Substance: RANITIDINE
     Dosage: 50 MG
     Route: 065
     Dates: start: 20210811, end: 20210811
  21. RANITIDINE [Concomitant]
     Active Substance: RANITIDINE
     Dosage: 50 MG
     Route: 065
     Dates: start: 20210901, end: 20210901
  22. RANITIDINE [Concomitant]
     Active Substance: RANITIDINE
     Dosage: 50 MG
     Route: 065
     Dates: start: 20210922, end: 20210922
  23. CYCLIZINE [Concomitant]
     Active Substance: CYCLIZINE
     Dosage: AS NECESSARY
     Route: 065
  24. CYCLIZINE [Concomitant]
     Active Substance: CYCLIZINE
     Route: 065
  25. CYCLIZINE [Concomitant]
     Active Substance: CYCLIZINE
     Route: 065
  26. CYCLIZINE [Concomitant]
     Active Substance: CYCLIZINE
     Route: 065
  27. DALTEPARIN [Concomitant]
     Active Substance: DALTEPARIN
     Dosage: UNK, 1X/DAY
     Dates: start: 20210905
  28. DALTEPARIN [Concomitant]
     Active Substance: DALTEPARIN
     Dates: start: 20210905
  29. DOMPERIDONE [Concomitant]
     Active Substance: DOMPERIDONE
     Indication: Prophylaxis
     Dosage: UNK, 3X/DAY
     Dates: start: 20210815
  30. DOMPERIDONE [Concomitant]
     Active Substance: DOMPERIDONE
     Dosage: UNK
     Dates: start: 20210815
  31. DOMPERIDONE [Concomitant]
     Active Substance: DOMPERIDONE
     Dates: start: 20210815
  32. DOXYCYCLINE [Concomitant]
     Active Substance: DOXYCYCLINE
     Dosage: UNK, 1X/DAY
     Dates: start: 20210905, end: 20210911
  33. IBUPROFEN [Concomitant]
     Active Substance: IBUPROFEN
     Dosage: AS NECESSARY
  34. MODAFINIL [Concomitant]
     Active Substance: MODAFINIL
     Dosage: UNK, 3X/DAY
     Route: 065
  35. MORPHINE [Concomitant]
     Active Substance: MORPHINE
     Dosage: UNK, 2X/DAY
     Route: 065
  36. MORPHINE [Concomitant]
     Active Substance: MORPHINE
     Route: 065
  37. OMEPRAZOLE [Concomitant]
     Active Substance: OMEPRAZOLE
     Indication: Prophylaxis
     Dosage: UNK, 1X/DAY
     Route: 065
  38. OMEPRAZOLE [Concomitant]
     Active Substance: OMEPRAZOLE
     Dosage: UNK
     Route: 065
  39. OMEPRAZOLE [Concomitant]
     Active Substance: OMEPRAZOLE
     Route: 065
  40. OMEPRAZOLE [Concomitant]
     Active Substance: OMEPRAZOLE
     Route: 065
  41. OMEPRAZOLE [Concomitant]
     Active Substance: OMEPRAZOLE
     Route: 065
  42. PREGABALIN [Concomitant]
     Active Substance: PREGABALIN
     Dosage: UNK, 1X/DAY
     Dates: start: 20210921
  43. PREGABALIN [Concomitant]
     Active Substance: PREGABALIN
     Dates: start: 20210921
  44. SENNOSIDES A AND B [Concomitant]
     Active Substance: SENNOSIDES A AND B
     Indication: Prophylaxis
     Dosage: UNK, 1X/DAY
     Route: 065
  45. VITAMIN D NOS [Concomitant]
     Active Substance: VITAMIN D NOS
     Indication: Prophylaxis
     Dosage: UNK, 1X/DAY
     Route: 065
  46. CALCIUM CARBONATE [Concomitant]
     Active Substance: CALCIUM CARBONATE
     Indication: Prophylaxis
  47. VIT D [VITAMIN D NOS] [Concomitant]
     Indication: Prophylaxis
     Dosage: UNK, 1X/DAY
     Route: 065
  48. METHYLPREDNISOLONE [Concomitant]
     Active Substance: METHYLPREDNISOLONE
     Dosage: UNK
     Dates: start: 20211220, end: 20211223
  49. METOCLOPRAMIDE [Concomitant]
     Active Substance: METOCLOPRAMIDE
  50. PREDNISOLONE [Concomitant]
     Active Substance: PREDNISOLONE
     Dosage: UNK
     Dates: start: 20211224
  51. SENNA [Concomitant]
     Active Substance: SENNA LEAF\SENNOSIDES\SENNOSIDES A AND B
  52. IMODIUM MULTI-SYMPTOM RELIEF [Concomitant]
     Active Substance: DIMETHICONE\LOPERAMIDE HYDROCHLORIDE
     Dosage: 1 DF, AS NEEDED
     Dates: start: 20211102

REACTIONS (3)
  - Pulmonary embolism [Recovering/Resolving]
  - Alopecia [Not Recovered/Not Resolved]
  - Vomiting [Recovered/Resolved with Sequelae]

NARRATIVE: CASE EVENT DATE: 20210812
